FAERS Safety Report 7812547-6 (Version None)
Quarter: 2011Q4

REPORT INFORMATION
  Report Type: 
  Country: None (occurrence: None)
  Receive Date: 20111013
  Receipt Date: 20110929
  Transmission Date: 20120403
  Serious: Yes (Life-Threatening, Hospitalization, Other)
  Sender: FDA-Public Use
  Company Number: JP-PFIZER INC-2011210836

PATIENT
  Age: 82 Year
  Sex: Female

DRUGS (7)
  1. AMLODIPINE [Concomitant]
     Dosage: UNK
     Dates: start: 20101101, end: 20110829
  2. TORASEMIDE [Concomitant]
     Dosage: UNK
     Dates: start: 20100313, end: 20110808
  3. CANDESARTAN CILEXETIL AND HYDROCHLOROTHIAZIDE [Concomitant]
     Dosage: UNK
     Dates: start: 20100809, end: 20110829
  4. ALLOPURINOL [Concomitant]
     Dosage: UNK
     Dates: start: 20110809
  5. CALCIUM POLYSTYRENE SULFONATE [Concomitant]
     Dosage: UNK
     Dates: start: 20110530
  6. MUCOSTA [Concomitant]
     Dosage: UNK
     Dates: start: 20110725, end: 20110814
  7. CELECOXIB [Suspect]
     Indication: ANALGESIC THERAPY
     Dosage: 100MG, 2X/DAY
     Route: 048
     Dates: start: 20110725, end: 20110814

REACTIONS (2)
  - BLOOD PRESSURE DECREASED [None]
  - PANCYTOPENIA [None]
